FAERS Safety Report 7789961-0 (Version None)
Quarter: 2011Q3

REPORT INFORMATION
  Report Type: 
  Country: None (occurrence: None)
  Receive Date: 20110930
  Receipt Date: 20100809
  Transmission Date: 20111222
  Serious: No
  Sender: FDA-Public Use
  Company Number: US-ASTRAZENECA-2010SE37177

PATIENT
  Age: 66 Year
  Sex: Female
  Weight: 59 kg

DRUGS (7)
  1. CREOCIN-T 2% [Concomitant]
  2. RENOVA [Concomitant]
  3. VITMANIN [Concomitant]
  4. HYZAAR [Concomitant]
  5. ARIMIDEX [Suspect]
     Indication: BREAST CANCER
     Route: 048
     Dates: start: 20090101
  6. CALCIUM CARBONATE [Concomitant]
  7. LEVOTHYROXINE [Concomitant]

REACTIONS (7)
  - BLOOD PRESSURE FLUCTUATION [None]
  - AMNESIA [None]
  - BONE LOSS [None]
  - ARTHRALGIA [None]
  - HOT FLUSH [None]
  - DRY EYE [None]
  - MADAROSIS [None]
